FAERS Safety Report 5725724-5 (Version None)
Quarter: 2008Q2

REPORT INFORMATION
  Report Type: 
  Country: None (occurrence: None)
  Receive Date: 20080501
  Receipt Date: 20080417
  Transmission Date: 20081010
  Serious: Yes (Hospitalization)
  Sender: FDA-Public Use
  Company Number: HU-GENENTECH-259530

PATIENT
  Sex: Female
  Weight: 64 kg

DRUGS (5)
  1. RITUXIMAB [Suspect]
     Indication: MANTLE CELL LYMPHOMA
     Dosage: 600 MG, Q3W
     Route: 042
     Dates: start: 20080228
  2. CYCLOPHOSPHAMIDE [Suspect]
     Indication: MANTLE CELL LYMPHOMA
     Dates: start: 20080228
  3. EPIRUBICIN [Suspect]
     Indication: MANTLE CELL LYMPHOMA
     Dates: start: 20080228
  4. PREDNISOLONE [Suspect]
     Indication: MANTLE CELL LYMPHOMA
     Dates: start: 20080228
  5. VINCRISTINE [Suspect]
     Indication: MANTLE CELL LYMPHOMA
     Dates: start: 20080228

REACTIONS (1)
  - PNEUMONIA [None]
